FAERS Safety Report 25703083 (Version 1)
Quarter: 2025Q3

REPORT INFORMATION
  Report Type: Report from Study
  Country: US (occurrence: US)
  Receive Date: 20250819
  Receipt Date: 20250819
  Transmission Date: 20251021
  Serious: Yes (Hospitalization)
  Sender: ABBVIE
  Company Number: US-ABBVIE-6419550

PATIENT
  Age: 52 Year
  Sex: Male
  Weight: 76.657 kg

DRUGS (3)
  1. CREON [Suspect]
     Active Substance: PANCRELIPASE AMYLASE\PANCRELIPASE LIPASE\PANCRELIPASE PROTEASE
     Indication: Pancreatitis
     Route: 048
     Dates: start: 20250417, end: 202506
  2. LISINOPRIL [Concomitant]
     Active Substance: LISINOPRIL
     Indication: Hypertension
  3. ATORVASTATIN [Concomitant]
     Active Substance: ATORVASTATIN
     Indication: Hypertension

REACTIONS (8)
  - Pancreatitis relapsing [Not Recovered/Not Resolved]
  - Pyrexia [Recovered/Resolved]
  - Weight decreased [Unknown]
  - Chills [Recovered/Resolved]
  - Sleep disorder [Recovered/Resolved]
  - Gastrooesophageal reflux disease [Recovering/Resolving]
  - Decreased appetite [Recovered/Resolved]
  - Pancreatitis necrotising [Recovering/Resolving]

NARRATIVE: CASE EVENT DATE: 20250101
